FAERS Safety Report 6732348-X (Version None)
Quarter: 2010Q2

REPORT INFORMATION
  Report Type: 
  Country: None (occurrence: None)
  Receive Date: 20100519
  Receipt Date: 20100507
  Transmission Date: 20101027
  Serious: Yes (Death, Hospitalization)
  Sender: FDA-Public Use
  Company Number: US-ROCHE-674102

PATIENT
  Sex: Male
  Weight: 101.2 kg

DRUGS (19)
  1. BEVACIZUMAB [Suspect]
     Indication: PROSTATE CANCER
     Dosage: 10 MG/KG, UNK
     Route: 042
     Dates: start: 20090612, end: 20090612
  2. ENZASTAURIN [Suspect]
     Indication: PROSTATE CANCER
     Dosage: 1125 MG, QD
     Route: 048
     Dates: start: 20090612, end: 20090612
  3. ENZASTAURIN [Suspect]
     Dosage: 1125 MG, QD
     Route: 048
     Dates: start: 20090612, end: 20090612
  4. ENZASTAURIN [Suspect]
     Dosage: 750 MG, BID
     Route: 048
     Dates: start: 20090613, end: 20090617
  5. ENZASTAURIN [Suspect]
     Dosage: 750 MG, BID
     Route: 048
     Dates: start: 20090613, end: 20090617
  6. ZYPREXA [Concomitant]
     Indication: DRUG USE FOR UNKNOWN INDICATION
  7. PROZAC [Concomitant]
     Indication: DRUG USE FOR UNKNOWN INDICATION
  8. WELLBUTRIN [Concomitant]
     Indication: DRUG USE FOR UNKNOWN INDICATION
  9. RITALIN [Concomitant]
     Indication: DRUG USE FOR UNKNOWN INDICATION
  10. ATIVAN [Concomitant]
     Indication: DRUG USE FOR UNKNOWN INDICATION
  11. LUPRON [Concomitant]
     Indication: DRUG USE FOR UNKNOWN INDICATION
  12. MULTI-VITAMIN [Concomitant]
     Indication: DRUG USE FOR UNKNOWN INDICATION
  13. GLUCOSAMINE [Concomitant]
     Indication: DRUG USE FOR UNKNOWN INDICATION
  14. FISH OIL [Concomitant]
     Indication: DRUG USE FOR UNKNOWN INDICATION
  15. ACETAMINOPHEN [Concomitant]
     Indication: DRUG USE FOR UNKNOWN INDICATION
  16. OXYCONTIN [Concomitant]
     Indication: DRUG USE FOR UNKNOWN INDICATION
     Dosage: UNK
     Dates: start: 20090605
  17. OXYCODONE [Concomitant]
     Indication: DRUG USE FOR UNKNOWN INDICATION
     Dosage: UNK
     Dates: start: 20090605
  18. SENOKOT [Concomitant]
     Indication: DRUG USE FOR UNKNOWN INDICATION
  19. PREDNISONE [Concomitant]
     Indication: DRUG USE FOR UNKNOWN INDICATION

REACTIONS (1)
  - VENTRICULAR TACHYCARDIA [None]
